FAERS Safety Report 7549792-3 (Version None)
Quarter: 2011Q2

REPORT INFORMATION
  Report Type: 
  Country: None (occurrence: None)
  Receive Date: 20110614
  Receipt Date: 20091226
  Transmission Date: 20111010
  Serious: Yes (Hospitalization, Other)
  Sender: FDA-Public Use
  Company Number: US-BAYER-200943336NA

PATIENT
  Age: 59 Year
  Sex: Male
  Weight: 71 kg

DRUGS (26)
  1. TOPROL-XL [Concomitant]
     Dosage: 100 MG, QD
  2. MORPHINE SULFATE [Concomitant]
     Dosage: UNK
     Dates: start: 20050929
  3. NITROGLYCERIN [Concomitant]
     Dosage: UNK
     Dates: start: 20050929
  4. TRASYLOL [Suspect]
     Indication: AORTIC VALVE REPLACEMENT
     Dosage: UNK
     Route: 042
     Dates: start: 20050929
  5. PLASMA [Concomitant]
     Dosage: UNK
     Dates: start: 20050929
  6. RED BLOOD CELLS [Concomitant]
     Dosage: UNK
     Dates: start: 20050929
  7. PREDNISONE [Concomitant]
     Dosage: 5 MG, QD
     Route: 048
  8. MANNITOL [Concomitant]
     Dosage: UNK
     Dates: start: 20050929
  9. FENTANYL [Concomitant]
     Dosage: UNK
     Dates: start: 20050929
  10. HYDROCHLOROTHIAZIDE [Concomitant]
  11. AMLODIPINE [Concomitant]
  12. TRASYLOL [Suspect]
     Indication: CORONARY ARTERY BYPASS
  13. PLAQUENIL [Concomitant]
     Dosage: 5 MG, BID
     Route: 048
     Dates: start: 20040116
  14. CATAPRES [Concomitant]
     Dosage: 0.2MG/24HR
     Route: 062
  15. DIOVAN [Concomitant]
     Dosage: 160/125MG DAILY
     Route: 048
  16. ACETYLSALICYLIC ACID SRT [Concomitant]
     Dosage: 325 MG, QD
  17. PROTAMINE SULFATE [Concomitant]
     Dosage: 300MG
     Route: 042
     Dates: start: 20050929
  18. INSULIN [Concomitant]
     Dosage: UNK
     Dates: start: 20050929
  19. SODIUM NITROPRUSSIDE [Concomitant]
     Dosage: UNK
     Dates: start: 20050929
  20. LASIX [Concomitant]
     Dosage: 20MG
     Dates: start: 20050903
  21. PROTONIX [Concomitant]
     Dosage: 40 MG, BID
     Route: 048
  22. WARFARIN SODIUM [Concomitant]
     Dosage: 4 MG, QD
     Route: 048
     Dates: start: 20040116
  23. FAMOTIDINE [Concomitant]
     Dosage: UNK
     Dates: start: 20050929
  24. AMICAR [Concomitant]
     Dosage: UNK
     Dates: start: 20050929
  25. AMIODARONE HCL [Concomitant]
     Dosage: 300MG
     Route: 042
     Dates: start: 20050929
  26. HEPARIN [Concomitant]
     Dosage: 35000 UNITS
     Route: 042
     Dates: start: 20050929

REACTIONS (7)
  - PAIN [None]
  - INJURY [None]
  - EMOTIONAL DISTRESS [None]
  - RENAL FAILURE ACUTE [None]
  - UNEVALUABLE EVENT [None]
  - ANXIETY [None]
  - RENAL FAILURE [None]
